FAERS Safety Report 5247355-6 (Version None)
Quarter: 2007Q1

REPORT INFORMATION
  Report Type: 
  Country: None (occurrence: None)
  Receive Date: 20070223
  Receipt Date: 20070223
  Transmission Date: 20070707
  Serious: Yes (Other)
  Sender: FDA-Public Use
  Company Number: None

PATIENT
  Age: 46 Year
  Sex: Female
  Weight: 55.5 kg

DRUGS (4)
  1. FLUDARABINE [Suspect]
     Indication: ACUTE MYELOID LEUKAEMIA
     Dosage: 23 MG QD IV X 5 DOSES
     Route: 042
     Dates: start: 20030604, end: 20030803
  2. CARBOPLATIN [Suspect]
     Indication: ACUTE MYELOID LEUKAEMIA
     Dosage: 270 MG QD IV X 5 DOSES
     Route: 042
     Dates: start: 20030604, end: 20030803
  3. TOPOTECAN [Suspect]
     Indication: ACUTE MYELOID LEUKAEMIA
     Dosage: 1.3 MG QD 3 DOSES IV
     Route: 042
     Dates: start: 20030609, end: 20031103
  4. THALIDOMIDE [Suspect]
     Indication: ACUTE MYELOID LEUKAEMIA
     Dosage: 100 MG QHS PO X 7 DAYS
     Route: 048
     Dates: start: 20030606, end: 20030622

REACTIONS (11)
  - ABDOMINAL PAIN [None]
  - ASCITES [None]
  - CHOLELITHIASIS [None]
  - DIARRHOEA [None]
  - HEPATOSPLENOMEGALY [None]
  - LYMPHADENOPATHY [None]
  - NAUSEA [None]
  - PYREXIA [None]
  - SPLEEN DISORDER [None]
  - VOMITING [None]
  - WAIST CIRCUMFERENCE INCREASED [None]
